FAERS Safety Report 4973845-7 (Version None)
Quarter: 2006Q2

REPORT INFORMATION
  Report Type: 
  Country: None (occurrence: None)
  Receive Date: 20060414
  Receipt Date: 20060403
  Transmission Date: 20061013
  Serious: Yes (Hospitalization)
  Sender: FDA-Public Use
  Company Number: US-MERCK-0604USA01586

PATIENT
  Age: 12 Month
  Sex: Female

DRUGS (1)
  1. PEPCID COMPLETE [Suspect]
     Route: 065

REACTIONS (3)
  - CLOSTRIDIAL INFECTION [None]
  - DRUG EXPOSURE DURING PREGNANCY [None]
  - DRUG EXPOSURE VIA BREAST MILK [None]
